FAERS Safety Report 9734104 (Version 1)
Quarter: 2013Q4

REPORT INFORMATION
  Report Type: Spontaneous
  Country: MX (occurrence: MX)
  Receive Date: 20131205
  Receipt Date: 20131205
  Transmission Date: 20140711
  Serious: Yes (Hospitalization)
  Sender: FDA-Public Use
  Company Number: MX-B.I. PHARMACEUTICALS,INC./RIDGEFIELD-2013-BI-39908MX

PATIENT
  Age: 58 Year
  Sex: Male

DRUGS (1)
  1. TRAYENTA DUO [Suspect]
     Indication: TYPE 2 DIABETES MELLITUS
     Dosage: DOES PER APPLICATION: 5 / 850 MG
     Route: 048
     Dates: start: 201302, end: 201304

REACTIONS (1)
  - Pancreatic carcinoma [Not Recovered/Not Resolved]
